FAERS Safety Report 13452896 (Version 1)
Quarter: 2017Q2

REPORT INFORMATION
  Report Type: Spontaneous
  Country: NO (occurrence: NO)
  Receive Date: 20170418
  Receipt Date: 20170418
  Transmission Date: 20170830
  Serious: Yes (Hospitalization, Other)
  Sender: FDA-Public Use
  Company Number: NO-ELI_LILLY_AND_COMPANY-NO201704004753

PATIENT
  Age: 37 Year
  Sex: Male

DRUGS (6)
  1. IBARIL [Concomitant]
     Indication: PRODUCT USED FOR UNKNOWN INDICATION
     Dosage: UNK, OTHER
     Route: 061
  2. ZYPADHERA [Suspect]
     Active Substance: OLANZAPINE PAMOATE
     Indication: SCHIZOAFFECTIVE DISORDER
     Dosage: 300 MG, MONTHLY (1/M)
     Route: 051
     Dates: start: 201409
  3. VIVAL [Concomitant]
     Active Substance: DIAZEPAM
     Indication: ANXIETY
     Dosage: 5 MG, PRN
     Route: 048
  4. LOCOID LIPID [Concomitant]
     Indication: PRODUCT USED FOR UNKNOWN INDICATION
     Dosage: UNK, BID
     Route: 061
  5. CLOZAPIN HEXAL [Suspect]
     Active Substance: CLOZAPINE
     Indication: SCHIZOAFFECTIVE DISORDER
     Dosage: 200 MG, EACH EVENING
     Route: 048
     Dates: start: 2001
  6. CLOZAPIN HEXAL [Suspect]
     Active Substance: CLOZAPINE
     Dosage: 150 MG, EACH EVENING
     Route: 048

REACTIONS (12)
  - Tachycardia [Unknown]
  - Incorrect route of drug administration [Unknown]
  - Restlessness [Unknown]
  - Myoclonus [Recovered/Resolved]
  - Drug level increased [Unknown]
  - Gait disturbance [Unknown]
  - Epilepsy [Recovered/Resolved]
  - Confusional state [Unknown]
  - Blood pressure increased [Unknown]
  - Obsessive thoughts [Unknown]
  - Fall [Unknown]
  - Respiratory rate increased [Unknown]

NARRATIVE: CASE EVENT DATE: 2014
